FAERS Safety Report 4845808-3 (Version None)
Quarter: 2005Q4

REPORT INFORMATION
  Report Type: 
  Country: None (occurrence: None)
  Receive Date: 20051201
  Receipt Date: 20020523
  Transmission Date: 20060501
  Serious: Yes (Death)
  Sender: FDA-Public Use
  Company Number: L05-SWE-04316-09

PATIENT
  Sex: Female

DRUGS (6)
  1. CITALOPRAM HYDROBROMIDE [Suspect]
  2. DILTIAZEM HCL [Concomitant]
  3. DEXTROPROPOXYPHENE [Concomitant]
  4. DIAZEPAM [Concomitant]
  5. NORDIAZEPAM [Concomitant]
  6. PARACETAMOL [Concomitant]

REACTIONS (2)
  - COMPLETED SUICIDE [None]
  - INTENTIONAL OVERDOSE [None]
